FAERS Safety Report 24957143 (Version 1)
Quarter: 2025Q1

REPORT INFORMATION
  Report Type: Spontaneous
  Country: US (occurrence: US)
  Receive Date: 20250211
  Receipt Date: 20250211
  Transmission Date: 20250409
  Serious: No
  Sender: BAUSCH AND LOMB
  Company Number: US-BAUSCHBL-2024BNL000220

PATIENT
  Age: 64 Year
  Sex: Female

DRUGS (1)
  1. PREDNISOLONE SODIUM PHOSPHATE\SULFACETAMIDE SODIUM [Suspect]
     Active Substance: PREDNISOLONE SODIUM PHOSPHATE\SULFACETAMIDE SODIUM
     Indication: Product used for unknown indication
     Route: 065

REACTIONS (1)
  - Hypersensitivity [Unknown]
